FAERS Safety Report 15464107 (Version 4)
Quarter: 2019Q1

REPORT INFORMATION
  Report Type: Spontaneous
  Country: US (occurrence: US)
  Receive Date: 20181004
  Receipt Date: 20190131
  Transmission Date: 20190417
  Serious: Yes (Hospitalization, Other)
  Sender: FDA-Public Use
  Company Number: US-009507513-1810USA001375

PATIENT
  Age: 59 Year
  Sex: Female
  Weight: 95.69 kg

DRUGS (5)
  1. METHOCARBAMOL. [Concomitant]
     Active Substance: METHOCARBAMOL
     Indication: TEMPOROMANDIBULAR JOINT SYNDROME
     Dosage: 2000-3000 MG DAILY DOSE
     Route: 048
     Dates: start: 20130226
  2. JANUVIA [Suspect]
     Active Substance: SITAGLIPTIN PHOSPHATE
     Indication: TYPE 2 DIABETES MELLITUS
     Dosage: 100 MG/ ONCE A DAY
     Route: 048
     Dates: start: 20140224, end: 20180927
  3. PRILOSEC [Concomitant]
     Active Substance: OMEPRAZOLE MAGNESIUM
     Indication: GASTROOESOPHAGEAL REFLUX DISEASE
     Dosage: 20 MILLIGRAM, BID
     Route: 048
     Dates: start: 20070427
  4. DULOXETINE HYDROCHLORIDE. [Concomitant]
     Active Substance: DULOXETINE HYDROCHLORIDE
     Indication: TEMPOROMANDIBULAR JOINT SYNDROME
     Dosage: 30 MILLIGRAM, BID
     Route: 048
     Dates: start: 20160817
  5. MELOXICAM. [Concomitant]
     Active Substance: MELOXICAM
     Indication: ARTHRITIS
     Dosage: 7.5 MILLIGRAM, QD
     Route: 048
     Dates: start: 20130822

REACTIONS (3)
  - Pancreatitis acute [Recovering/Resolving]
  - Ovarian cyst [Unknown]
  - Abdominal pain upper [Recovered/Resolved]

NARRATIVE: CASE EVENT DATE: 20180920
